FAERS Safety Report 12705768 (Version 1)
Quarter: 2016Q3

REPORT INFORMATION
  Report Type: Spontaneous
  Country: US (occurrence: None)
  Receive Date: 20160831
  Receipt Date: 20160831
  Transmission Date: 20161109
  Serious: Yes (Hospitalization, Disabling)
  Sender: FDA-Public Use
  Company Number: None

PATIENT
  Age: 80 Year
  Sex: Female
  Weight: 54.43 kg

DRUGS (15)
  1. DULOXETINE. [Concomitant]
     Active Substance: DULOXETINE
  2. HYDROMORPHONE (DILAUDID) [Concomitant]
  3. MIRALAX [Concomitant]
     Active Substance: POLYETHYLENE GLYCOL 3350
  4. FENTANYL. [Concomitant]
     Active Substance: FENTANYL
  5. MULTIVITAMIN WITH MINERALS (OCUVITE) [Concomitant]
  6. PROLIA [Suspect]
     Active Substance: DENOSUMAB
     Indication: OSTEOPOROSIS
     Dosage: 1 INJECTION EVERY 6 MONTHS INJECTION
     Dates: start: 20160329, end: 20160329
  7. CHOLECALCIFEROL (VITAMIN D3) [Concomitant]
  8. FUROSEMIDE. [Concomitant]
     Active Substance: FUROSEMIDE
  9. NAPROXEN. [Concomitant]
     Active Substance: NAPROXEN
  10. SPIRONOLACTONE. [Concomitant]
     Active Substance: SPIRONOLACTONE
  11. RANITIDINE (ZANTAC) [Concomitant]
  12. DOCUSATE (DOCUSATE SODIUM) [Concomitant]
  13. SENNA [Concomitant]
     Active Substance: SENNA LEAF\SENNOSIDES\SENNOSIDES A AND B
  14. CALCIUM-VITAMIN D (CITRACAL+D) [Concomitant]
  15. CYANOCOBALAMIN (VITAMIN B-12) [Concomitant]

REACTIONS (4)
  - Muscle spasms [None]
  - Arthralgia [None]
  - Myalgia [None]
  - Mobility decreased [None]

NARRATIVE: CASE EVENT DATE: 20160329
